FAERS Safety Report 9458613 (Version 1)
Quarter: 2013Q3

REPORT INFORMATION
  Report Type: Spontaneous
  Country: FR (occurrence: FR)
  Receive Date: 20130814
  Receipt Date: 20130814
  Transmission Date: 20140515
  Serious: Yes (Death, Life-Threatening, Congenital Anomaly)
  Sender: FDA-Public Use
  Company Number: PHHY2013FR087217

PATIENT
  Sex: Female
  Weight: .73 kg

DRUGS (4)
  1. EXFORGE [Suspect]
     Dosage: MATERNAL DOSE: 1 DF (160MG VALS/ 5MG AMLO) QD
     Route: 064
  2. TENORMINE [Concomitant]
     Dosage: MATERNAL DOSE: 100MG QD
     Route: 064
  3. UN-ALFA [Concomitant]
     Dosage: MATERNAL DOSE: 1UG QD
     Route: 064
  4. CALCIDIA [Concomitant]
     Dosage: MATERNAL DOSE: 1 DF TID
     Route: 064

REACTIONS (7)
  - Renal failure [Fatal]
  - Respiratory distress [Fatal]
  - Anuria [Fatal]
  - Pulmonary hypoplasia [Fatal]
  - Angiotensin converting enzyme inhibitor foetopathy [Fatal]
  - Foetal distress syndrome [Fatal]
  - Foetal exposure during pregnancy [Unknown]
